FAERS Safety Report 18417287 (Version 3)
Quarter: 2021Q1

REPORT INFORMATION
  Report Type: Spontaneous
  Country: US (occurrence: US)
  Receive Date: 20201022
  Receipt Date: 20210107
  Transmission Date: 20210419
  Serious: Yes (Hospitalization)
  Sender: FDA-Public Use
  Company Number: US-SEATTLE GENETICS-2020SGN03429

PATIENT
  Age: 39 Year
  Sex: Female

DRUGS (1)
  1. TUKYSA [Suspect]
     Active Substance: TUCATINIB
     Indication: BREAST CANCER FEMALE
     Dosage: UNK UNK, BID

REACTIONS (7)
  - Septic shock [Unknown]
  - Hospitalisation [Unknown]
  - Chemotherapy [Unknown]
  - Blood test abnormal [Unknown]
  - Diarrhoea [Unknown]
  - Nausea [Unknown]
  - Radiotherapy [Unknown]

NARRATIVE: CASE EVENT DATE: 20201129
